FAERS Safety Report 13269507 (Version 1)
Quarter: 2017Q1

REPORT INFORMATION
  Report Type: Spontaneous
  Country: JP (occurrence: JP)
  Receive Date: 20170224
  Receipt Date: 20170224
  Transmission Date: 20170428
  Serious: Yes (Death)
  Sender: FDA-Public Use
  Company Number: JP-PFIZER INC-2017079746

PATIENT
  Age: 87 Year
  Sex: Male

DRUGS (5)
  1. SOLU-MEDROL [Suspect]
     Active Substance: METHYLPREDNISOLONE SODIUM SUCCINATE
     Indication: SKIN EROSION
     Dosage: 125 MG, 2X/DAY
  2. PREDNISOLONE. [Suspect]
     Active Substance: PREDNISOLONE
     Dosage: 15 MG, DAILY
  3. PREDNISOLONE. [Suspect]
     Active Substance: PREDNISOLONE
     Dosage: 13.3 MG, DAILY
  4. PREDNISOLONE. [Suspect]
     Active Substance: PREDNISOLONE
     Dosage: 20 MG, DAILY
  5. NEORAL [Suspect]
     Active Substance: CYCLOSPORINE
     Indication: SKIN EROSION
     Dosage: 100 MG, DAILY

REACTIONS (1)
  - Bronchopulmonary aspergillosis [Fatal]
